FAERS Safety Report 5909330-5 (Version None)
Quarter: 2008Q4

REPORT INFORMATION
  Report Type: 
  Country: None (occurrence: None)
  Receive Date: 20081002
  Receipt Date: 20080917
  Transmission Date: 20090506
  Serious: Yes (Hospitalization)
  Sender: FDA-Public Use
  Company Number: TNZIE200800103

PATIENT
  Age: 36 Year
  Sex: Female

DRUGS (4)
  1. INNOHEP [Suspect]
     Indication: PROTEIN C DEFICIENCY
     Dosage: (4500 IU,DAILY), SUBCUTANEOUS
     Route: 058
     Dates: start: 20060803, end: 20070410
  2. DOSTINEX [Concomitant]
  3. CYCLOGEST (PROGESTERONE) [Concomitant]
  4. ESTROFEM (ESTRADIOL) [Concomitant]

REACTIONS (9)
  - ALCOHOL USE [None]
  - CAESAREAN SECTION [None]
  - CELLULITIS [None]
  - DRUG EXPOSURE DURING PREGNANCY [None]
  - LOWER RESPIRATORY TRACT INFECTION [None]
  - PLACENTA PRAEVIA [None]
  - PREMATURE LABOUR [None]
  - THREATENED LABOUR [None]
  - VAGINAL HAEMORRHAGE [None]
